FAERS Safety Report 6297466-1 (Version None)
Quarter: 2009Q3

REPORT INFORMATION
  Report Type: 
  Country: None (occurrence: None)
  Receive Date: 20090804
  Receipt Date: 20090804
  Transmission Date: 20100115
  Serious: No
  Sender: FDA-Public Use
  Company Number: None

PATIENT
  Age: 57 Year
  Sex: Male

DRUGS (1)
  1. IOPROMIDE [Suspect]
     Indication: SCAN WITH CONTRAST
     Dosage: 100 ML ONCE IV
     Route: 042
     Dates: start: 20090616, end: 20090616

REACTIONS (1)
  - ANGIOEDEMA [None]
